FAERS Safety Report 4558977-X (Version None)
Quarter: 2005Q1

REPORT INFORMATION
  Report Type: 
  Country: None (occurrence: None)
  Receive Date: 20050121
  Receipt Date: 20050121
  Transmission Date: 20050727
  Serious: Yes (Hospitalization)
  Sender: FDA-Public Use
  Company Number: None

PATIENT
  Age: 50 Year
  Sex: Male
  Weight: 83.9 kg

DRUGS (14)
  1. GATIFLOXACIN [Suspect]
  2. KETOROLAC TROMETHAMINE [Concomitant]
  3. FENTANYL [Concomitant]
  4. SIMVASTATIN TAB [Concomitant]
  5. RANITIDINE TAB [Concomitant]
  6. PHENYTOIN [Concomitant]
  7. ENALAPRIL TAB [Concomitant]
  8. BETAMETHASONE VALERATE [Concomitant]
  9. ATENOLOL [Concomitant]
  10. ACETAMINOPHEN (INPT-UD) TAB [Concomitant]
  11. DIPHENHYDRAMINE CAP [Concomitant]
  12. WARFARIN SODIUM [Concomitant]
  13. CARA-KLENZ SKIN + WOUND CLEANSER (BT) [Concomitant]
  14. SILVER SULFADIAZINE [Concomitant]

REACTIONS (1)
  - RASH ERYTHEMATOUS [None]
